FAERS Safety Report 23681558 (Version 1)
Quarter: 2024Q1

REPORT INFORMATION
  Report Type: Other
  Country: US (occurrence: None)
  Receive Date: 20240328
  Receipt Date: 20240328
  Transmission Date: 20240410
  Serious: Yes (Hospitalization)
  Sender: FDA-Public Use
  Company Number: US-ROCHE-3529961

PATIENT
  Age: 65 Year
  Sex: Female

DRUGS (20)
  1. OCRELIZUMAB [Suspect]
     Active Substance: OCRELIZUMAB
     Indication: Multiple sclerosis
     Route: 065
     Dates: start: 20210625
  2. OCRELIZUMAB [Suspect]
     Active Substance: OCRELIZUMAB
     Route: 065
     Dates: start: 20210708
  3. OCRELIZUMAB [Suspect]
     Active Substance: OCRELIZUMAB
     Route: 065
     Dates: start: 20220111
  4. OCRELIZUMAB [Suspect]
     Active Substance: OCRELIZUMAB
     Route: 065
     Dates: start: 20220712
  5. OCRELIZUMAB [Suspect]
     Active Substance: OCRELIZUMAB
     Route: 065
     Dates: start: 20230214
  6. OCRELIZUMAB [Suspect]
     Active Substance: OCRELIZUMAB
     Route: 065
     Dates: start: 20230828
  7. VENLAFAXINE HYDROCHLORIDE [Concomitant]
     Active Substance: VENLAFAXINE HYDROCHLORIDE
  8. ERGOCALCIFEROL [Concomitant]
     Active Substance: ERGOCALCIFEROL
  9. MONTELUKAST [Concomitant]
     Active Substance: MONTELUKAST SODIUM
  10. PRAMIPEXOLE [Concomitant]
     Active Substance: PRAMIPEXOLE\PRAMIPEXOLE DIHYDROCHLORIDE
  11. LISINOPRIL [Concomitant]
     Active Substance: LISINOPRIL
  12. BACLOFEN [Concomitant]
     Active Substance: BACLOFEN
  13. GABAPENTIN [Concomitant]
     Active Substance: GABAPENTIN
  14. ACETAMINOPHEN [Concomitant]
     Active Substance: ACETAMINOPHEN
  15. FLUTICASONE [Concomitant]
     Active Substance: FLUTICASONE
  16. NPH INSULIN [Concomitant]
     Active Substance: INSULIN BEEF
  17. IBUPROFEN [Concomitant]
     Active Substance: IBUPROFEN
  18. PANTOPRAZOLE [Concomitant]
     Active Substance: PANTOPRAZOLE
     Indication: Gastrooesophageal reflux disease
  19. PRAVASTATIN [Concomitant]
     Active Substance: PRAVASTATIN
  20. METHYLPREDNISOLONE SODIUM SUCCINATE [Concomitant]
     Active Substance: METHYLPREDNISOLONE SODIUM SUCCINATE

REACTIONS (1)
  - Urosepsis [Recovered/Resolved]

NARRATIVE: CASE EVENT DATE: 20240214
